FAERS Safety Report 8342997-3 (Version None)
Quarter: 2012Q2

REPORT INFORMATION
  Report Type: 
  Country: None (occurrence: None)
  Receive Date: 20120508
  Receipt Date: 20120502
  Transmission Date: 20120825
  Serious: Yes (Other)
  Sender: FDA-Public Use
  Company Number: PHHY2012BR038332

PATIENT
  Sex: Male
  Weight: 82 kg

DRUGS (7)
  1. BISOPROLOL FUMARATE [Concomitant]
     Indication: CARDIAC DISORDER
     Dosage: 5 MG,ONE TABLET IN THE MORNING
  2. PLAGREL [Concomitant]
     Indication: CARDIOVASCULAR DISORDER
     Dosage: 75 MG, ONE TABLET AT MORNING
     Dates: start: 20120407
  3. PANTOPRAZOLE [Concomitant]
     Indication: GASTRIC DISORDER
     Dosage: 1 DF, FASTING
  4. DIMETICONE [Concomitant]
     Indication: FLATULENCE
     Dosage: 40 MG, UNK
  5. SIMVACOR [Concomitant]
     Indication: BLOOD CHOLESTEROL ABNORMAL
     Dosage: 40 MG, ONE TABLET AT NIGHT
  6. EXFORGE [Suspect]
     Indication: HYPERTENSION
     Dosage: 1 DF (160/5 MG), IN THE MORNING
     Dates: end: 20120409
  7. ASPIRIN PREVENT [Concomitant]
     Indication: ANTICOAGULANT THERAPY
     Dosage: 100 MG, ONE TABLET DAILY

REACTIONS (4)
  - HYPERTENSION [None]
  - HEMIPLEGIA [None]
  - DYSPHONIA [None]
  - ISCHAEMIA [None]
